FAERS Safety Report 10046860 (Version 1)
Quarter: 2014Q1

REPORT INFORMATION
  Report Type: Spontaneous
  Country: US (occurrence: US)
  Receive Date: 20140331
  Receipt Date: 20140331
  Transmission Date: 20141002
  Serious: Yes (Hospitalization, Other)
  Sender: FDA-Public Use
  Company Number: US-SA-2014SA034937

PATIENT
  Age: 61 Year
  Sex: Male

DRUGS (1)
  1. LANTUS [Suspect]
     Indication: DIABETES MELLITUS
     Dosage: DOSE:8 UNIT(S)
     Route: 058
     Dates: start: 201309

REACTIONS (7)
  - Poor peripheral circulation [Unknown]
  - Gangrene [Unknown]
  - Cardiac failure congestive [Unknown]
  - Pulmonary congestion [Unknown]
  - Dehydration [Unknown]
  - Urinary tract infection [Unknown]
  - Pneumonia [Unknown]
